FAERS Safety Report 16647189 (Version 1)
Quarter: 2019Q3

REPORT INFORMATION
  Report Type: Spontaneous
  Country: FR (occurrence: FR)
  Receive Date: 20190730
  Receipt Date: 20190730
  Transmission Date: 20191004
  Serious: Yes (Other)
  Sender: FDA-Public Use
  Company Number: US-BRAINTREE LABORATORIES-190415

PATIENT
  Age: 64 Year
  Sex: Female

DRUGS (1)
  1. EZICLEN [Suspect]
     Active Substance: MAGNESIUM SULFATE\POTASSIUM SULFATE\SODIUM SULFATE
     Route: 065

REACTIONS (7)
  - Anorectal discomfort [None]
  - Dizziness [None]
  - Visual impairment [None]
  - Abdominal pain upper [None]
  - Arrhythmia [None]
  - Genital discomfort [None]
  - Nausea [None]

NARRATIVE: CASE EVENT DATE: 20190714
